FAERS Safety Report 6348820-0 (Version None)
Quarter: 2009Q3

REPORT INFORMATION
  Report Type: 
  Country: None (occurrence: None)
  Receive Date: 20090911
  Receipt Date: 20090903
  Transmission Date: 20100115
  Serious: Yes (Hospitalization)
  Sender: FDA-Public Use
  Company Number: ZA-AVENTIS-200919093GDDC

PATIENT
  Age: 79 Year
  Sex: Male
  Weight: 68.4 kg

DRUGS (18)
  1. AFLIBERCEPT [Suspect]
     Route: 042
     Dates: start: 20090811, end: 20090811
  2. DOCETAXEL [Suspect]
     Route: 042
     Dates: start: 20090811, end: 20090811
  3. PREDNISONE TAB [Suspect]
     Route: 048
     Dates: start: 20090625, end: 20090811
  4. ZOLADEX [Concomitant]
     Dosage: DOSE: UNK
     Dates: start: 20070419
  5. CRESTOR [Concomitant]
     Dosage: DOSE: UNK
     Dates: start: 20060101
  6. MICARDIS [Concomitant]
     Dosage: DOSE: UNK
     Dates: start: 20090525
  7. CONCOR                             /00802602/ [Concomitant]
     Dosage: DOSE: UNK
     Dates: start: 20060101
  8. DISPRIN                            /00002701/ [Concomitant]
     Dosage: DOSE: UNK
     Dates: start: 20060701
  9. ELTROXIN [Concomitant]
     Dosage: DOSE: UNK
     Dates: start: 19790101
  10. WARFARIN SODIUM [Concomitant]
     Dosage: DOSE: UNK
     Dates: start: 20080601
  11. NUTRITIONAL SUPPLEMENT [Concomitant]
     Dosage: DOSE: UNK
  12. VIT B COMPLEX [Concomitant]
     Dosage: DOSE: UNK
  13. FOLIC ACID [Concomitant]
     Dosage: DOSE: UNK
  14. OMEGA 3, 6, 9 [Concomitant]
     Dosage: DOSE: UNK
  15. ZAMANON [Concomitant]
     Dosage: DOSE: UNK
     Dates: start: 20090626
  16. LANSOLOC [Concomitant]
     Dosage: DOSE: UNK
     Dates: start: 20090626
  17. CLOPAMON [Concomitant]
     Dosage: DOSE: UNK
     Dates: start: 20090626
  18. CARLOC [Concomitant]
     Dosage: DOSE: UNK
     Dates: start: 20090629

REACTIONS (1)
  - URETHRAL STENOSIS [None]
